FAERS Safety Report 8392341-0 (Version None)
Quarter: 2012Q1

REPORT INFORMATION
  Report Type: 
  Country: None (occurrence: None)
  Receive Date: 20120323
  Receipt Date: 20110414
  Transmission Date: 20120608
  Serious: Yes (Hospitalization, Other)
  Sender: FDA-Public Use
  Company Number: 163-21880-11040287

PATIENT
  Age: 80 Year
  Sex: Male

DRUGS (9)
  1. ATENOLOL [Concomitant]
  2. RYTHMOL [Concomitant]
  3. REVLIMID [Suspect]
     Indication: MYELODYSPLASTIC SYNDROME
     Dosage: 5 MG, DAILY X 21 DAYS, PO ; 10 MG, DAILY, PO
     Route: 048
     Dates: start: 20110224, end: 20110101
  4. REVLIMID [Suspect]
     Indication: MYELODYSPLASTIC SYNDROME
     Dosage: 5 MG, DAILY X 21 DAYS, PO ; 10 MG, DAILY, PO
     Route: 048
     Dates: start: 20110401, end: 20110101
  5. SYNTHROID [Concomitant]
  6. SIMVASTATIN [Concomitant]
  7. PRILOSEC [Concomitant]
  8. LOVENOX [Concomitant]
  9. COUMADIN [Concomitant]

REACTIONS (2)
  - DYSPNOEA [None]
  - FULL BLOOD COUNT DECREASED [None]
